FAERS Safety Report 11646043 (Version 4)
Quarter: 2016Q1

REPORT INFORMATION
  Report Type: Spontaneous
  Country: US (occurrence: US)
  Receive Date: 20151020
  Receipt Date: 20160124
  Transmission Date: 20160525
  Serious: Yes (Other)
  Sender: FDA-Public Use
  Company Number: US-ROCHE-1623933

PATIENT
  Age: 79 Year
  Sex: Female
  Weight: 90.8 kg

DRUGS (29)
  1. PLAVIX [Concomitant]
     Active Substance: CLOPIDOGREL BISULFATE
     Dosage: MAINTENANCE
     Route: 048
  2. GABAPENTIN. [Concomitant]
     Active Substance: GABAPENTIN
     Dosage: 300 MG/24 HOUR ORAL TAB EXTENDED RELEASE, MAINTENENCE
     Route: 048
  3. DUONEB [Concomitant]
     Active Substance: ALBUTEROL SULFATE\IPRATROPIUM BROMIDE
     Dosage: 0.5-2.5 MG/3 ML INHALATION SOLUTION, EVERY MORNNING AND THEB 6 TO 8 HRS AS NEEDED 3 REFILL
     Route: 065
  4. ULTRAM [Concomitant]
     Active Substance: TRAMADOL HYDROCHLORIDE
     Indication: PAIN
     Dosage: AS NEEDED FOR MAINTENANCE
     Route: 048
  5. CLONAZEPAM. [Concomitant]
     Active Substance: CLONAZEPAM
     Indication: ANXIETY
     Dosage: PRN AS NEEDED TAKE HALF TAB AS NEEDED , UP TO TWICE A DAY 30 TABLET, 5 REFILL MAINTENANCE
     Route: 048
  6. CLONAZEPAM. [Concomitant]
     Active Substance: CLONAZEPAM
     Indication: NERVOUSNESS
  7. ESBRIET [Suspect]
     Active Substance: PIRFENIDONE
     Indication: IDIOPATHIC PULMONARY FIBROSIS
     Dosage: 3 CAPSULE THRICE DAILY
     Route: 048
     Dates: start: 20150828
  8. SIMVASTATIN. [Concomitant]
     Active Substance: SIMVASTATIN
     Dosage: HS MAINTENANCE
     Route: 048
  9. RANEXA [Concomitant]
     Active Substance: RANOLAZINE
     Dosage: EXTENDED RELEASE, 120 TABLET MAINTENANCE
     Route: 048
  10. FLUTICASONE [Concomitant]
     Active Substance: FLUTICASONE\FLUTICASONE PROPIONATE
     Dosage: 50 MCG, 1 SPRAY
     Route: 045
  11. ADVAIR HFA [Concomitant]
     Active Substance: FLUTICASONE PROPIONATE\SALMETEROL XINAFOATE
     Dosage: 250 MCG-50 MCG INHALATION POWER, 1 PUFF, 11 REFILL.
     Route: 065
  12. ISOSORBIDE MONONITRATE. [Concomitant]
     Active Substance: ISOSORBIDE MONONITRATE
     Dosage: THREE TABLET DAILY MAINTENANCE
     Route: 048
  13. XOPENEX [Concomitant]
     Active Substance: LEVALBUTEROL HYDROCHLORIDE
     Indication: BRONCHIAL HYPERREACTIVITY
  14. HYDRALAZINE [Concomitant]
     Active Substance: HYDRALAZINE HYDROCHLORIDE
     Dosage: MAINTENANCE
     Route: 065
  15. ASPIRIN. [Concomitant]
     Active Substance: ASPIRIN
     Dosage: MAINTENANCE
     Route: 065
  16. CLONIDINE. [Concomitant]
     Active Substance: CLONIDINE
     Dosage: MAINTENANCE, ONE IN MORNING AND 2 TABLET IN HS
     Route: 065
  17. SYNTHROID [Concomitant]
     Active Substance: LEVOTHYROXINE SODIUM
     Dosage: 90 TABLET MAINTENANCE
     Route: 048
  18. LOSARTAN. [Concomitant]
     Active Substance: LOSARTAN
     Dosage: MAINTENANCE
     Route: 048
  19. NEXIUM [Concomitant]
     Active Substance: ESOMEPRAZOLE MAGNESIUM
     Dosage: ORAL DELAYED RELEASE CAPSULE, MAINTENANCE
     Route: 048
  20. RESTORIL [Concomitant]
     Active Substance: TEMAZEPAM
     Dosage: AS NEEDED FOR SLEEP, 30 CAPSULE MAINTENANCE
     Route: 048
  21. XOPENEX [Concomitant]
     Active Substance: LEVALBUTEROL HYDROCHLORIDE
     Indication: INTERSTITIAL LUNG DISEASE
     Dosage: 0.63 MG/3 ML INHALATION SOLUTION
     Route: 065
  22. XOPENEX [Concomitant]
     Active Substance: LEVALBUTEROL HYDROCHLORIDE
     Indication: DYSPNOEA
  23. DILTIAZEM [Concomitant]
     Active Substance: DILTIAZEM
     Dosage: MAINTENANCE
     Route: 065
  24. MONTELUKAST [Concomitant]
     Active Substance: MONTELUKAST SODIUM
     Dosage: 90 TABLET MAINTENANCE
     Route: 048
  25. DEXILANT [Concomitant]
     Active Substance: DEXLANSOPRAZOLE
     Dosage: ORAL DELAYED RELEASE CAPSULE, MAINTENANCE
     Route: 048
  26. DIFLUCAN [Concomitant]
     Active Substance: FLUCONAZOLE
     Dosage: 7 TABLET MAINTENANCE
     Route: 048
  27. GLIPIZIDE. [Concomitant]
     Active Substance: GLIPIZIDE
     Dosage: EXTENDED RELEASE, MAINTENANCE
     Route: 048
  28. VEXOL [Concomitant]
     Active Substance: RIMEXOLONE
     Dosage: 1% OPTHALMIC SUSPENSION, 2 DROP EYE
     Route: 047
  29. PRIMIDONE. [Concomitant]
     Active Substance: PRIMIDONE
     Dosage: 1 TABLET ORAL IN MORNING AND 2 TAB AT BED TIME 90 TABLET 5 REFILL MAINTENANCE
     Route: 048

REACTIONS (9)
  - Corneal abscess [Unknown]
  - Rash [Unknown]
  - Alopecia [Unknown]
  - Blindness [Unknown]
  - Eye abscess [Unknown]
  - Asthenia [Unknown]
  - Blood glucose increased [Unknown]
  - Malaise [Unknown]
  - Blister [Unknown]

NARRATIVE: CASE EVENT DATE: 20150903
